FAERS Safety Report 24563627 (Version 1)
Quarter: 2024Q4

REPORT INFORMATION
  Report Type: Spontaneous
  Country: US (occurrence: US)
  Receive Date: 20241030
  Receipt Date: 20241030
  Transmission Date: 20250115
  Serious: Yes (Other)
  Sender: LEADING PHARMA
  Company Number: US-LEADINGPHARMA-US-2024LEALIT00465

PATIENT
  Age: 75 Year
  Sex: Female

DRUGS (4)
  1. LIDOCAINE [Suspect]
     Active Substance: LIDOCAINE
     Indication: Product used for unknown indication
     Route: 065
  2. AZITHROMYCIN [Concomitant]
     Active Substance: AZITHROMYCIN
     Indication: Pneumonia
     Route: 065
  3. CEFEPIME [Concomitant]
     Active Substance: CEFEPIME HYDROCHLORIDE
     Indication: Pneumonia
     Route: 065
  4. VANCOMYCIN [Concomitant]
     Active Substance: VANCOMYCIN
     Indication: Pneumonia
     Route: 065

REACTIONS (1)
  - Enterococcal infection [Recovering/Resolving]
